FAERS Safety Report 15120640 (Version 3)
Quarter: 2018Q3

REPORT INFORMATION
  Report Type: Spontaneous
  Country: JP (occurrence: JP)
  Receive Date: 20180709
  Receipt Date: 20180928
  Transmission Date: 20181010
  Serious: Yes (Hospitalization, Other)
  Sender: FDA-Public Use
  Company Number: JP-PFIZER INC-2018272969

PATIENT
  Age: 79 Year
  Sex: Female

DRUGS (6)
  1. TELMISARTAN. [Concomitant]
     Active Substance: TELMISARTAN
     Dosage: UNK
     Route: 048
  2. ETIZOLAM [Concomitant]
     Active Substance: ETIZOLAM
     Indication: INSOMNIA
     Dosage: UNK
  3. METGLUCO [Suspect]
     Active Substance: METFORMIN HYDROCHLORIDE
     Dosage: UNK
     Route: 048
  4. FENOFIBRATE. [Concomitant]
     Active Substance: FENOFIBRATE
     Dosage: UNK
     Route: 048
  5. AMLODIPINE BESILATE [Suspect]
     Active Substance: AMLODIPINE BESYLATE
     Dosage: UNK
     Route: 048
  6. FUROSEMIDE. [Concomitant]
     Active Substance: FUROSEMIDE
     Dosage: UNK
     Route: 048

REACTIONS (3)
  - Pyelonephritis [Unknown]
  - Fall [Unknown]
  - Blood pressure decreased [Unknown]
